FAERS Safety Report 23680079 (Version 1)
Quarter: 2024Q1

REPORT INFORMATION
  Report Type: Spontaneous
  Country: AU (occurrence: AU)
  Receive Date: 20240327
  Receipt Date: 20240327
  Transmission Date: 20240410
  Serious: Yes (Hospitalization)
  Sender: FDA-Public Use
  Company Number: AU-009507513-2403AUS008870

PATIENT
  Age: 67 Year

DRUGS (2)
  1. BCG LIVE [Suspect]
     Active Substance: BACILLUS CALMETTE-GUERIN SUBSTRAIN TICE LIVE ANTIGEN
     Indication: Bladder cancer
     Dosage: UNK
     Dates: start: 2021, end: 20211020
  2. TOCILIZUMAB [Concomitant]
     Active Substance: TOCILIZUMAB
     Dosage: UNK, QW

REACTIONS (7)
  - Abdominal pain upper [Not Recovered/Not Resolved]
  - Haematuria [Recovered/Resolved]
  - Computerised tomogram abnormal [Unknown]
  - Jaundice [Unknown]
  - Liver disorder [Unknown]
  - Malaise [Unknown]
  - Chromaturia [Unknown]
